FAERS Safety Report 20066766 (Version 2)
Quarter: 2023Q4

REPORT INFORMATION
  Report Type: Other
  Country: DE (occurrence: None)
  Receive Date: 20211115
  Receipt Date: 20231219
  Transmission Date: 20240109
  Serious: Yes (Hospitalization)
  Sender: FDA-Public Use
  Company Number: DE-ROCHE-2950577

PATIENT
  Age: 23 Year
  Sex: Female
  Weight: 82 kg

DRUGS (1)
  1. OCREVUS [Suspect]
     Active Substance: OCRELIZUMAB
     Indication: Relapsing-remitting multiple sclerosis
     Route: 065
     Dates: start: 20210323, end: 20210409

REACTIONS (1)
  - Tubo-ovarian abscess [Recovered/Resolved]

NARRATIVE: CASE EVENT DATE: 20211008
